FAERS Safety Report 25903874 (Version 1)
Quarter: 2025Q4

REPORT INFORMATION
  Report Type: Report from Study
  Country: BR (occurrence: BR)
  Receive Date: 20251010
  Receipt Date: 20251010
  Transmission Date: 20260118
  Serious: Yes (Other)
  Sender: Haleon PLC
  Company Number: BR-002147023-NVSC2024BR135897

PATIENT
  Age: 52 Year
  Sex: Female

DRUGS (4)
  1. DICLOFENAC [Suspect]
     Active Substance: DICLOFENAC
     Indication: COVID-19
     Dosage: PATIENT ROA -UNKNOWN
  2. KISQALI [Suspect]
     Active Substance: RIBOCICLIB SUCCINATE
     Indication: Product used for unknown indication
     Dosage: UNK, PATIENT ROA -UNKNOWN, START DATE: AUG-2023.
     Dates: start: 202308
  3. SIMVASTATIN [Suspect]
     Active Substance: SIMVASTATIN
     Indication: Product used for unknown indication
     Dosage: AT NIGHT, PATIENT ROA - UNKNOWN
  4. FULVESTRANT [Suspect]
     Active Substance: FULVESTRANT
     Indication: Product used for unknown indication
     Dosage: PATIENT ROA -UNKNOWN

REACTIONS (3)
  - Metastasis [Unknown]
  - Nausea [Unknown]
  - Abdominal discomfort [Unknown]
